FAERS Safety Report 17889537 (Version 1)
Quarter: 2020Q2

REPORT INFORMATION
  Report Type: Spontaneous
  Country: US (occurrence: TZ)
  Receive Date: 20200612
  Receipt Date: 20200612
  Transmission Date: 20200714
  Serious: Yes (Hospitalization)
  Sender: FDA-Public Use
  Company Number: US-MICRO LABS LIMITED-ML2020-01769

PATIENT
  Age: 4 Year
  Sex: Male

DRUGS (8)
  1. LOPINAVIR\RITONAVIR [Suspect]
     Active Substance: LOPINAVIR\RITONAVIR
     Indication: ACQUIRED IMMUNODEFICIENCY SYNDROME
  2. DEXAMETHASONE. [Suspect]
     Active Substance: DEXAMETHASONE
     Indication: PREMEDICATION
  3. PACLITAXEL. [Suspect]
     Active Substance: PACLITAXEL
     Indication: KAPOSI^S SARCOMA
     Dosage: 12 CYCLES MONOTHERAPY
  4. LAMIVUDINE, NEVIRAPINE AND ZIDOVUDINE [Suspect]
     Active Substance: LAMIVUDINE\NEVIRAPINE\ZIDOVUDINE
     Indication: ACQUIRED IMMUNODEFICIENCY SYNDROME
  5. BLEOMYCIN [Suspect]
     Active Substance: BLEOMYCIN SULFATE
     Indication: KAPOSI^S SARCOMA
     Dosage: 15 U/M2
  6. DOXORUBICIN [Suspect]
     Active Substance: DOXORUBICIN
     Indication: KAPOSI^S SARCOMA
     Dosage: 25-35 MG/M2
  7. ABACAVIR\LAMIVUDINE [Suspect]
     Active Substance: ABACAVIR\LAMIVUDINE
     Indication: HIV TEST POSITIVE
  8. VINCRISTINE [Suspect]
     Active Substance: VINCRISTINE
     Indication: KAPOSI^S SARCOMA

REACTIONS (3)
  - Immune reconstitution inflammatory syndrome associated Kaposi^s sarcoma [Recovered/Resolved]
  - Taeniasis [Recovered/Resolved]
  - Anaemia [Unknown]
